FAERS Safety Report 6073300-X (Version None)
Quarter: 2009Q1

REPORT INFORMATION
  Report Type: 
  Country: None (occurrence: None)
  Receive Date: 20090211
  Receipt Date: 20090127
  Transmission Date: 20090719
  Serious: Yes (Hospitalization, Other)
  Sender: FDA-Public Use
  Company Number: PHHY2009FR03091

PATIENT
  Sex: Female

DRUGS (5)
  1. COTAREG [Suspect]
     Indication: HYPERTENSION
     Dosage: 1 DF, QD
     Dates: start: 19990101, end: 20090105
  2. IBUPROFENE [Suspect]
     Indication: PYREXIA
     Dosage: 3 DF, QD
     Dates: start: 20081229, end: 20090105
  3. ZITHROMAX [Concomitant]
     Dosage: UNK
     Dates: start: 20090102, end: 20090105
  4. DOLIPRANE [Concomitant]
     Dosage: UNK
     Dates: start: 20090102, end: 20090105
  5. LAROSCORBINE [Concomitant]
     Dosage: UNK
     Dates: start: 20090102, end: 20090105

REACTIONS (15)
  - BLOOD CREATININE INCREASED [None]
  - BLOOD POTASSIUM DECREASED [None]
  - BLOOD UREA INCREASED [None]
  - C-REACTIVE PROTEIN INCREASED [None]
  - DEHYDRATION [None]
  - DRY MOUTH [None]
  - GENERAL PHYSICAL HEALTH DETERIORATION [None]
  - INFLAMMATION [None]
  - PAIN [None]
  - PNEUMONIA [None]
  - PYREXIA [None]
  - RALES [None]
  - RED BLOOD CELL SEDIMENTATION RATE INCREASED [None]
  - RENAL FAILURE ACUTE [None]
  - TONGUE DRY [None]
